FAERS Safety Report 17104163 (Version 8)
Quarter: 2020Q4

REPORT INFORMATION
  Report Type: Report from Study
  Country: US (occurrence: US)
  Receive Date: 20191203
  Receipt Date: 20201124
  Transmission Date: 20210113
  Serious: Yes (Hospitalization, Other)
  Sender: FDA-Public Use
  Company Number: NVSC2019US056851

PATIENT
  Sex: Male

DRUGS (6)
  1. ENTRESTO [Suspect]
     Active Substance: SACUBITRIL\VALSARTAN
     Indication: PRODUCT USED FOR UNKNOWN INDICATION
     Dosage: 1 DF (SACUBITRIL 24 MG/ VALSARTAN 26 MG), BID
     Route: 048
     Dates: start: 20191112
  2. ENTRESTO [Suspect]
     Active Substance: SACUBITRIL\VALSARTAN
     Dosage: UNK
     Route: 048
     Dates: start: 201911
  3. SOTALOL. [Suspect]
     Active Substance: SOTALOL
     Dosage: UNK, BID
     Route: 048
  4. SOTALOL. [Suspect]
     Active Substance: SOTALOL
     Dosage: 80 MG, UNKNOWN
     Route: 048
  5. PLAVIX [Interacting]
     Active Substance: CLOPIDOGREL BISULFATE
     Indication: PRODUCT USED FOR UNKNOWN INDICATION
     Dosage: UNK
     Route: 048
  6. SOTALOL. [Suspect]
     Active Substance: SOTALOL
     Indication: PRODUCT USED FOR UNKNOWN INDICATION
     Dosage: 120 MG, UNKNOWN
     Route: 048

REACTIONS (18)
  - Dyspnoea exertional [Unknown]
  - Chest pain [Unknown]
  - Oedema [Unknown]
  - Drug interaction [Unknown]
  - Blood pressure increased [Unknown]
  - Arrhythmia [Unknown]
  - Peripheral swelling [Unknown]
  - Dizziness [Recovering/Resolving]
  - Blood potassium increased [Unknown]
  - Hypotension [Unknown]
  - Ejection fraction decreased [Recovered/Resolved with Sequelae]
  - Pain in extremity [Unknown]
  - Malaise [Unknown]
  - Fluid overload [Unknown]
  - Pulmonary hypertension [Unknown]
  - Mitral valve incompetence [Unknown]
  - Weight increased [Unknown]
  - Heart rate irregular [Unknown]
